FAERS Safety Report 14426468 (Version 2)
Quarter: 2018Q3

REPORT INFORMATION
  Report Type: Spontaneous
  Country: US (occurrence: US)
  Receive Date: 20180123
  Receipt Date: 20180723
  Transmission Date: 20181010
  Serious: Yes (Other)
  Sender: FDA-Public Use
  Company Number: US-BAYER-2018-011413

PATIENT
  Age: 74 Year
  Sex: Male
  Weight: 59.86 kg

DRUGS (9)
  1. ISOSORBIDE. [Concomitant]
     Active Substance: ISOSORBIDE
     Dosage: UNK
  2. LEVOTHYROXINE. [Concomitant]
     Active Substance: LEVOTHYROXINE
     Dosage: UNK
  3. APIXABAN [Concomitant]
     Active Substance: APIXABAN
     Dosage: UNK
  4. SOTALOL. [Concomitant]
     Active Substance: SOTALOL
     Dosage: UNK
  5. SIMVASTATIN. [Concomitant]
     Active Substance: SIMVASTATIN
     Dosage: UNK
  6. CORICIDIN HBP COUGH AND COLD [Suspect]
     Active Substance: CHLORPHENIRAMINE MALEATE\DEXTROMETHORPHAN HYDROBROMIDE
     Indication: HYPERSENSITIVITY
     Dosage: AT LEAST 6 IN 24 HOURS (YESTERDAY AT 21:30 TOOK 2, TODAY AT 03:30 TOOK 2 AND AT 09:30 TOOK 2 MORE)
     Dates: start: 20180112, end: 20180117
  7. CORICIDIN HBP MAXIMUM STRENGTH FLU [Suspect]
     Active Substance: ACETAMINOPHEN\CHLORPHENIRAMINE MALEATE\DEXTROMETHORPHAN HYDROBROMIDE
     Indication: COUGH
  8. CORICIDIN HBP COUGH AND COLD [Suspect]
     Active Substance: CHLORPHENIRAMINE MALEATE\DEXTROMETHORPHAN HYDROBROMIDE
     Indication: NASOPHARYNGITIS
  9. CORICIDIN HBP MAXIMUM STRENGTH FLU [Suspect]
     Active Substance: ACETAMINOPHEN\CHLORPHENIRAMINE MALEATE\DEXTROMETHORPHAN HYDROBROMIDE
     Indication: RHINORRHOEA
     Dosage: UNK
     Dates: start: 20180112

REACTIONS (4)
  - Product use complaint [None]
  - Blood pressure systolic increased [Recovered/Resolved]
  - Drug ineffective [None]
  - Incorrect dosage administered [Unknown]

NARRATIVE: CASE EVENT DATE: 20180116
